FAERS Safety Report 8074689-2 (Version None)
Quarter: 2012Q1

REPORT INFORMATION
  Report Type: 
  Country: None (occurrence: None)
  Receive Date: 20120126
  Receipt Date: 20120117
  Transmission Date: 20120608
  Serious: Yes (Other)
  Sender: FDA-Public Use
  Company Number: PT-BAXTER-2012BH001889

PATIENT
  Age: 43 Year
  Sex: Female

DRUGS (6)
  1. EXTRANEAL [Suspect]
     Route: 033
     Dates: start: 20120115, end: 20120116
  2. PHYSIOSOL IN PLASTIC CONTAINER [Suspect]
     Route: 033
     Dates: start: 20120115, end: 20120116
  3. PHYSIOSOL IN PLASTIC CONTAINER [Suspect]
     Route: 033
     Dates: start: 20100501, end: 20120115
  4. PHYSIOSOL IN PLASTIC CONTAINER [Suspect]
     Indication: PERITONEAL DIALYSIS
     Route: 033
     Dates: start: 20120115, end: 20120116
  5. EXTRANEAL [Suspect]
     Indication: PERITONEAL DIALYSIS
     Route: 033
     Dates: start: 20111101, end: 20120115
  6. PHYSIOSOL IN PLASTIC CONTAINER [Suspect]
     Route: 033
     Dates: start: 20100501, end: 20120115

REACTIONS (2)
  - PERITONITIS BACTERIAL [None]
  - GASTROINTESTINAL DISORDER [None]
